FAERS Safety Report 4788778-9 (Version None)
Quarter: 2005Q4

REPORT INFORMATION
  Report Type: 
  Country: None (occurrence: None)
  Receive Date: 20051004
  Receipt Date: 20050922
  Transmission Date: 20060501
  Serious: Yes (Other)
  Sender: FDA-Public Use
  Company Number: 2005133490

PATIENT
  Age: 5 Year
  Sex: Female

DRUGS (1)
  1. DRAMAMINE SUPPOSITORY (DIMENHYDRINATE) [Suspect]
     Indication: DIZZINESS
     Dosage: 25 MG ONCE, RECTAL
     Route: 054
     Dates: start: 20050914, end: 20050914

REACTIONS (6)
  - DRY MOUTH [None]
  - HYPERTENSION [None]
  - MYDRIASIS [None]
  - SOMNOLENCE [None]
  - TACHYCARDIA [None]
  - TREMOR [None]
